FAERS Safety Report 6608107-5 (Version None)
Quarter: 2010Q1

REPORT INFORMATION
  Report Type: 
  Country: None (occurrence: None)
  Receive Date: 20100226
  Receipt Date: 20100226
  Transmission Date: 20100710
  Serious: Yes (Hospitalization)
  Sender: FDA-Public Use
  Company Number: None

PATIENT
  Age: 31 Year
  Sex: Male
  Weight: 90.7194 kg

DRUGS (4)
  1. CLOZAPINE [Suspect]
     Dosage: 900MG DAY PO
     Route: 048
  2. ARIPIPRAZOLE [Concomitant]
  3. PAROXETINE HCL [Concomitant]
  4. DEPAKOTE [Concomitant]

REACTIONS (3)
  - CONVULSION [None]
  - ELECTROENCEPHALOGRAM ABNORMAL [None]
  - MYOCLONUS [None]
